FAERS Safety Report 13156695 (Version 1)
Quarter: 2017Q1

REPORT INFORMATION
  Report Type: Spontaneous
  Country: US (occurrence: US)
  Receive Date: 20170126
  Receipt Date: 20170126
  Transmission Date: 20170428
  Serious: No
  Sender: FDA-Public Use
  Company Number: US-AMGEN-USASP2017012262

PATIENT
  Sex: Female

DRUGS (6)
  1. CALCIUM [Concomitant]
     Active Substance: CALCIUM
  2. S-ADENOSYLMETHIONINE SULFATE P-TOLUENESULFONATE [Concomitant]
     Active Substance: ADEMETIONINE SULFATE TOSILATE
  3. PRED MILD [Concomitant]
     Active Substance: PREDNISOLONE ACETATE
  4. ENBREL [Suspect]
     Active Substance: ETANERCEPT
     Indication: RHEUMATOID ARTHRITIS
     Dosage: 25 MG, 2 TIMES/WK
     Route: 058
  5. MELATONIN [Concomitant]
     Active Substance: MELATONIN
  6. FLAREX [Concomitant]
     Active Substance: FLUOROMETHOLONE ACETATE

REACTIONS (2)
  - Urticaria [Unknown]
  - Pruritus [Unknown]
